FAERS Safety Report 11229367 (Version 4)
Quarter: 2015Q3

REPORT INFORMATION
  Report Type: Report from Study
  Country: BR (occurrence: BR)
  Receive Date: 20150630
  Receipt Date: 20150914
  Transmission Date: 20151125
  Serious: Yes (Hospitalization, Other)
  Sender: FDA-Public Use
  Company Number: PHHY2015BR078180

PATIENT
  Age: 26 Year
  Sex: Female
  Weight: 46 kg

DRUGS (2)
  1. EXJADE [Suspect]
     Active Substance: DEFERASIROX
     Indication: SICKLE CELL ANAEMIA
     Dosage: 2 DF (20 MG/KG), QD
     Route: 048
     Dates: start: 20150811
  2. ACIDO FOLICO//FOLIC ACID [Concomitant]
     Active Substance: FOLIC ACID
     Indication: ANAEMIA
     Dosage: 1 DF, QD
     Route: 048

REACTIONS (8)
  - Arthralgia [Recovered/Resolved]
  - Wrong technique in product usage process [Unknown]
  - Pain in extremity [Recovered/Resolved]
  - Vomiting [Unknown]
  - Peripheral swelling [Recovered/Resolved]
  - Nausea [Unknown]
  - Haemoglobin decreased [Recovered/Resolved]
  - Sickle cell anaemia with crisis [Recovered/Resolved]

NARRATIVE: CASE EVENT DATE: 20150811
